FAERS Safety Report 13982260 (Version 1)
Quarter: 2017Q3

REPORT INFORMATION
  Report Type: Other
  Country: ES (occurrence: ES)
  Receive Date: 20170918
  Receipt Date: 20170918
  Transmission Date: 20171128
  Serious: Yes (Other)
  Sender: FDA-Public Use
  Company Number: ES-ASTELLAS-2017US036783

PATIENT
  Age: 19 Year
  Sex: Male

DRUGS (5)
  1. ADVAGRAF [Suspect]
     Active Substance: TACROLIMUS
     Indication: LIVER TRANSPLANT
     Dosage: 0.5 MG, UNKNOWN FREQ.
     Route: 048
     Dates: start: 20030408
  2. PERSANTIN [Suspect]
     Active Substance: DIPYRIDAMOLE
     Indication: THROMBOSIS PROPHYLAXIS
     Route: 048
     Dates: start: 20150704
  3. CELLCEPT [Suspect]
     Active Substance: MYCOPHENOLATE MOFETIL\MYCOPHENOLATE MOFETIL HYDROCHLORIDE
     Indication: LIVER TRANSPLANT
     Route: 048
     Dates: start: 20030408
  4. URSOCHOL [Suspect]
     Active Substance: URSODIOL
     Indication: BILE DUCT STENOSIS
     Dosage: 150 MG, THRICE DAILY (1-1-1)
     Route: 048
     Dates: start: 20030408
  5. URBASON                            /00049601/ [Suspect]
     Active Substance: METHYLPREDNISOLONE
     Indication: PRODUCT USED FOR UNKNOWN INDICATION
     Route: 048
     Dates: start: 20030408

REACTIONS (4)
  - Transplant rejection [Unknown]
  - Hepatic function abnormal [Not Recovered/Not Resolved]
  - Treatment noncompliance [Unknown]
  - Rhabdomyolysis [Recovered/Resolved]

NARRATIVE: CASE EVENT DATE: 201312
